FAERS Safety Report 4701162-9 (Version None)
Quarter: 2005Q2

REPORT INFORMATION
  Report Type: 
  Country: None (occurrence: None)
  Receive Date: 20050628
  Receipt Date: 20050623
  Transmission Date: 20051028
  Serious: Yes (Other)
  Sender: FDA-Public Use
  Company Number: JP-GLAXOSMITHKLINE-B0385572A

PATIENT
  Age: 59 Year
  Sex: Male

DRUGS (3)
  1. EPIVIR [Suspect]
     Indication: HIV INFECTION
     Dosage: 150MG TWICE PER DAY
     Route: 048
     Dates: start: 19981124
  2. ZERIT [Suspect]
     Indication: HIV INFECTION
     Dosage: 40MG TWICE PER DAY
     Route: 048
     Dates: start: 19981124
  3. VIRAMUNE [Suspect]
     Indication: HIV INFECTION
     Dosage: 200MG TWICE PER DAY
     Route: 048
     Dates: start: 19981124

REACTIONS (1)
  - DIABETES MELLITUS [None]
